FAERS Safety Report 9263812 (Version 1)
Quarter: 2013Q2

REPORT INFORMATION
  Report Type: Spontaneous
  Country: US (occurrence: None)
  Receive Date: 20130429
  Receipt Date: 20130429
  Transmission Date: 20140414
  Serious: Yes (Other)
  Sender: FDA-Public Use
  Company Number: None

PATIENT
  Age: 66 Year
  Sex: Female
  Weight: 99.79 kg

DRUGS (1)
  1. CARISOPRODOL [Suspect]
     Indication: BACK INJURY
     Dosage: 1 TABLET
     Dates: start: 20120820, end: 20120915

REACTIONS (3)
  - Asthenia [None]
  - Posture abnormal [None]
  - Muscular weakness [None]
